FAERS Safety Report 14689549 (Version 1)
Quarter: 2018Q1

REPORT INFORMATION
  Report Type: Spontaneous
  Country: US (occurrence: US)
  Receive Date: 20180327
  Receipt Date: 20180327
  Transmission Date: 20180509
  Serious: Yes (Other)
  Sender: FDA-Public Use
  Company Number: None

PATIENT
  Age: 47 Year
  Sex: Male
  Weight: 112.5 kg

DRUGS (3)
  1. TYLENOL [Concomitant]
     Active Substance: ACETAMINOPHEN
  2. SUDAFED [Concomitant]
     Active Substance: PSEUDOEPHEDRINE HYDROCHLORIDE
  3. CHLORASEPTIC SORE THROAT MAX LIQUID CENTER [Suspect]
     Active Substance: BENZOCAINE\MENTHOL
     Indication: OROPHARYNGEAL PAIN
     Dosage: QUANTITY:1 LOZENGE;OTHER FREQUENCY:EVERY 2 HOURS;?
     Route: 048
     Dates: start: 20180325

REACTIONS (1)
  - Throat tightness [None]

NARRATIVE: CASE EVENT DATE: 20180327
